FAERS Safety Report 12453114 (Version 5)
Quarter: 2021Q3

REPORT INFORMATION
  Report Type: Report from Study
  Country: FR (occurrence: FR)
  Receive Date: 20160609
  Receipt Date: 20210923
  Transmission Date: 20211014
  Serious: No
  Sender: FDA-Public Use
  Company Number: FR-SHIRE-FR201606866

PATIENT
  Age: 50 Year
  Sex: Female
  Weight: 48 kg

DRUGS (3)
  1. VELAGLUCERASE ALFA [Suspect]
     Active Substance: VELAGLUCERASE ALFA
     Dosage: 2400 IU, 1X/2WKS
     Route: 041
     Dates: start: 20140909, end: 20150611
  2. VELAGLUCERASE ALFA [Suspect]
     Active Substance: VELAGLUCERASE ALFA
     Indication: GAUCHER^S DISEASE TYPE I
     Dosage: 2400 IU, 1X/2WKS
     Route: 041
     Dates: start: 20150928
  3. VELAGLUCERASE ALFA [Suspect]
     Active Substance: VELAGLUCERASE ALFA
     Dosage: 2400 IU, 1X/2WKS
     Route: 041
     Dates: start: 20111222, end: 20120722

REACTIONS (1)
  - Abdominal pain upper [Recovered/Resolved]

NARRATIVE: CASE EVENT DATE: 201604
